FAERS Safety Report 16049528 (Version 1)
Quarter: 2019Q1

REPORT INFORMATION
  Report Type: Spontaneous
  Country: GB (occurrence: GB)
  Receive Date: 20190307
  Receipt Date: 20190307
  Transmission Date: 20190418
  Serious: Yes (Other)
  Sender: FDA-Public Use
  Company Number: GB-NOVOPROD-649187

PATIENT
  Age: 35 Year
  Sex: Female
  Weight: 68 kg

DRUGS (2)
  1. LEVEMIR [Suspect]
     Active Substance: INSULIN DETEMIR
     Indication: TYPE 1 DIABETES MELLITUS
     Dosage: 21 IU
     Route: 051
     Dates: start: 20181007, end: 20190208
  2. TRESIBA [Concomitant]
     Active Substance: INSULIN DEGLUDEC
     Dosage: UNK

REACTIONS (8)
  - Malaise [Recovering/Resolving]
  - Paraesthesia [Recovering/Resolving]
  - Musculoskeletal stiffness [Recovering/Resolving]
  - Hypoaesthesia [Unknown]
  - Muscular weakness [Recovering/Resolving]
  - Drug ineffective [Unknown]
  - Dizziness [Recovering/Resolving]
  - Pain in extremity [Unknown]

NARRATIVE: CASE EVENT DATE: 20181120
